FAERS Safety Report 5046579-0 (Version None)
Quarter: 2006Q2

REPORT INFORMATION
  Report Type: 
  Country: None (occurrence: None)
  Receive Date: 20060630
  Receipt Date: 20060623
  Transmission Date: 20061013
  Serious: Yes (Death, Other)
  Sender: FDA-Public Use
  Company Number: 2006-01363

PATIENT
  Age: 63 Year

DRUGS (19)
  1. VELCADE [Suspect]
     Indication: MANTLE CELL LYMPHOMA
     Dosage: SEE IMAGE
     Dates: end: 20060403
  2. VELCADE [Suspect]
     Indication: MANTLE CELL LYMPHOMA
     Dosage: SEE IMAGE
     Dates: start: 20050613
  3. DOXIL [Suspect]
     Indication: MANTLE CELL LYMPHOMA
     Dates: start: 20050613, end: 20060403
  4. DEXAMETHASONE [Suspect]
     Indication: MANTLE CELL LYMPHOMA
     Dates: start: 20050613, end: 20060403
  5. RITUXIMAB (RITUXIMAB) SOLUTION [Suspect]
     Indication: MANTLE CELL LYMPHOMA
     Dates: start: 20050613, end: 20060403
  6. MABCAMPATH (ALEMTUZUMABZ) [Suspect]
     Dosage: 30.00 MG
  7. ONCOVIN [Suspect]
     Dosage: 2.00 MG
  8. FORTECORTIN [Concomitant]
  9. RECORMON (ERYTHROPOIETIN HUMAN) [Concomitant]
  10. DOXORUBICIN HCL [Concomitant]
  11. NEUPOGEN [Concomitant]
  12. ARANESP [Concomitant]
  13. ACETAMINOPHEN [Concomitant]
  14. DIFLUCAN [Concomitant]
  15. AVELOX [Concomitant]
  16. NEXIUM [Concomitant]
  17. IRBESARTAN [Concomitant]
  18. ALLOPURINOL [Concomitant]
  19. CEDUR (BEZAFIBRATE) [Concomitant]

REACTIONS (12)
  - ABDOMINAL PAIN [None]
  - ANOREXIA [None]
  - CITROBACTER SEPSIS [None]
  - COLITIS [None]
  - DIARRHOEA [None]
  - DISEASE PROGRESSION [None]
  - GASTROINTESTINAL HAEMORRHAGE [None]
  - INFECTION [None]
  - INSOMNIA [None]
  - NEUTROPENIA [None]
  - RASH [None]
  - RESPIRATORY FAILURE [None]
